FAERS Safety Report 5636820-5 (Version None)
Quarter: 2008Q1

REPORT INFORMATION
  Report Type: 
  Country: None (occurrence: None)
  Receive Date: 20080220
  Receipt Date: 20080220
  Transmission Date: 20080703
  Serious: Yes (Hospitalization, Disabling)
  Sender: FDA-Public Use
  Company Number: None

PATIENT
  Age: 14 Year
  Sex: Female
  Weight: 45.8133 kg

DRUGS (1)
  1. LAMICTAL [Suspect]
     Indication: BIPOLAR DISORDER
     Dosage: 25 MG DAILY PO
     Route: 048
     Dates: start: 20080125, end: 20080214

REACTIONS (4)
  - APHAGIA [None]
  - RASH GENERALISED [None]
  - THERMAL BURN [None]
  - VISUAL DISTURBANCE [None]
